FAERS Safety Report 4298865-X (Version None)
Quarter: 2004Q1

REPORT INFORMATION
  Report Type: 
  Country: None (occurrence: None)
  Receive Date: 20040126
  Receipt Date: 20031107
  Transmission Date: 20041129
  Serious: No
  Sender: FDA-Public Use
  Company Number: USA031152012

PATIENT
  Sex: Female

DRUGS (1)
  1. STRATTERA [Suspect]
     Dosage: 40 MG
     Dates: start: 20030701

REACTIONS (5)
  - ASTHENIA [None]
  - BLEPHAROSPASM [None]
  - CHILLS [None]
  - DIZZINESS [None]
  - PARAESTHESIA [None]
